FAERS Safety Report 9495117 (Version 1)
Quarter: 2013Q3

REPORT INFORMATION
  Report Type: Report from Study
  Country: US (occurrence: US)
  Receive Date: 20130903
  Receipt Date: 20130903
  Transmission Date: 20140515
  Serious: Yes (Other)
  Sender: FDA-Public Use
  Company Number: US-009507513-1308USA011993

PATIENT
  Age: 48 Year
  Sex: Female
  Weight: 109.75 kg

DRUGS (13)
  1. DECADRON [Suspect]
     Indication: ADENOCARCINOMA OF COLON
     Dosage: UNK
  2. FLUOROURACIL [Concomitant]
     Indication: ADENOCARCINOMA OF COLON
     Dosage: UNK
     Dates: start: 20130508
  3. ELOXATIN [Concomitant]
     Dosage: UNK
     Dates: start: 20130508
  4. LEUCOVORIN CALCIUM [Concomitant]
     Dosage: UNK
     Dates: start: 20130508
  5. ATIVAN [Concomitant]
  6. BENADRYL [Concomitant]
  7. CITALOPRAM [Concomitant]
  8. EMEND [Concomitant]
  9. FERROUS SULFATE [Concomitant]
  10. HYDROCODONE [Concomitant]
  11. KYTRIL [Concomitant]
  12. LORAZEPAM [Concomitant]
  13. PEPCID [Concomitant]

REACTIONS (1)
  - Hyperglycaemia [Recovered/Resolved]
